FAERS Safety Report 6842065-3 (Version None)
Quarter: 2010Q3

REPORT INFORMATION
  Report Type: 
  Country: None (occurrence: None)
  Receive Date: 20100714
  Receipt Date: 20070719
  Transmission Date: 20110219
  Serious: Yes (Other)
  Sender: FDA-Public Use
  Company Number: US-PFIZER INC-2007061330

PATIENT
  Age: 55 Year
  Sex: Female

DRUGS (1)
  1. CHANTIX [Suspect]
     Indication: SMOKING CESSATION THERAPY
     Dates: start: 20070709, end: 20070701

REACTIONS (5)
  - CONSTIPATION [None]
  - HOT FLUSH [None]
  - HUNGER [None]
  - INCREASED APPETITE [None]
  - WEIGHT INCREASED [None]
